FAERS Safety Report 22989718 (Version 2)
Quarter: 2023Q4

REPORT INFORMATION
  Report Type: Report from Study
  Country: US (occurrence: US)
  Receive Date: 20230927
  Receipt Date: 20231112
  Transmission Date: 20240109
  Serious: Yes (Hospitalization, Other)
  Sender: FDA-Public Use
  Company Number: US-ABBVIE-5336736

PATIENT
  Age: 77 Year
  Sex: Male
  Weight: 65 kg

DRUGS (2)
  1. HUMIRA [Suspect]
     Active Substance: ADALIMUMAB
     Indication: Colitis ulcerative
     Dosage: FORM STRENGTH 40 MILLIGRAMS
     Route: 058
     Dates: start: 20221208
  2. HUMIRA [Suspect]
     Active Substance: ADALIMUMAB
     Dosage: STOP DATE 2022?FORM STRENGTH 40 MILLIGRAMS
     Route: 058
     Dates: start: 20220909

REACTIONS (1)
  - Hernia [Recovering/Resolving]

NARRATIVE: CASE EVENT DATE: 20230701
